FAERS Safety Report 8818949 (Version 1)
Quarter: 2012Q4

REPORT INFORMATION
  Report Type: Spontaneous
  Country: US (occurrence: None)
  Receive Date: 20121004
  Receipt Date: 20121004
  Transmission Date: 20130627
  Serious: No
  Sender: FDA-Public Use
  Company Number: None

PATIENT
  Age: 56 Year
  Sex: Female
  Weight: 81.65 kg

DRUGS (2)
  1. CLONIDINE HCL [Suspect]
     Indication: BLOOD PRESSURE HIGH
     Route: 048
     Dates: start: 20120826, end: 20120908
  2. LISINOPRIL [Suspect]
     Indication: BLOOD PRESSURE HIGH
     Route: 048
     Dates: start: 20120826, end: 20120909

REACTIONS (5)
  - Toxicity to various agents [None]
  - Fatigue [None]
  - Pain in jaw [None]
  - Feeling hot [None]
  - Blood pressure increased [None]
